FAERS Safety Report 15696168 (Version 4)
Quarter: 2019Q1

REPORT INFORMATION
  Report Type: Report from Study
  Country: US (occurrence: US)
  Receive Date: 20181206
  Receipt Date: 20190228
  Transmission Date: 20190417
  Serious: Yes (Hospitalization)
  Sender: FDA-Public Use
  Company Number: US-ACTELION-A-US2018-177329

PATIENT
  Sex: Male
  Weight: 79.82 kg

DRUGS (6)
  1. VELETRI [Suspect]
     Active Substance: EPOPROSTENOL
     Dosage: 24 NG/KG, PER MIN
     Route: 042
  2. VELETRI [Suspect]
     Active Substance: EPOPROSTENOL
     Dosage: 8 NG/KG, PER MIN
     Route: 042
  3. VELETRI [Suspect]
     Active Substance: EPOPROSTENOL
     Dosage: 20 NG/KG, PER MIN
     Route: 042
  4. OPSUMIT [Suspect]
     Active Substance: MACITENTAN
     Indication: PULMONARY HYPERTENSION
     Dosage: 10 MG, QD
     Route: 048
  5. VELETRI [Suspect]
     Active Substance: EPOPROSTENOL
     Indication: PULMONARY HYPERTENSION
     Dosage: 28.3 NG/KG, PER MIN
     Route: 042
  6. VELETRI [Suspect]
     Active Substance: EPOPROSTENOL
     Dosage: 19 NG/KG, PER MIN
     Route: 042

REACTIONS (42)
  - Nausea [Unknown]
  - Dyspnoea [Unknown]
  - Condition aggravated [Unknown]
  - Musculoskeletal chest pain [Unknown]
  - Lung transplant [Unknown]
  - Catheter site rash [Unknown]
  - Photopsia [Unknown]
  - Diarrhoea [Unknown]
  - Decreased appetite [Unknown]
  - Pain in extremity [Unknown]
  - Gastrooesophageal reflux disease [Unknown]
  - Presyncope [Unknown]
  - Abdominal pain [Unknown]
  - Oedema peripheral [Unknown]
  - Headache [Unknown]
  - Epistaxis [Unknown]
  - Sinus congestion [Unknown]
  - Dyspnoea exertional [Unknown]
  - Shoulder operation [Unknown]
  - Loss of consciousness [Unknown]
  - Cough [Not Recovered/Not Resolved]
  - Oropharyngeal pain [Unknown]
  - Sputum discoloured [Unknown]
  - Wheezing [Unknown]
  - Abdominal distension [Unknown]
  - Pain in jaw [Not Recovered/Not Resolved]
  - Syncope [Unknown]
  - Paranasal sinus hypersecretion [Unknown]
  - Fatigue [Unknown]
  - Dizziness [Unknown]
  - Discharge [Unknown]
  - Oxygen saturation decreased [Unknown]
  - Rash [Recovered/Resolved]
  - Abdominal pain upper [Unknown]
  - Productive cough [Unknown]
  - Hospitalisation [Unknown]
  - Cold sweat [Unknown]
  - Swelling [Unknown]
  - Oxygen consumption [Unknown]
  - Dizziness postural [Unknown]
  - Choking [Unknown]
  - Gastrointestinal sounds abnormal [Unknown]
